FAERS Safety Report 9175987 (Version 3)
Quarter: 2013Q2

REPORT INFORMATION
  Report Type: Report from Study
  Country: US (occurrence: US)
  Receive Date: 20130320
  Receipt Date: 20130415
  Transmission Date: 20140414
  Serious: Yes (Hospitalization)
  Sender: FDA-Public Use
  Company Number: US-ROCHE-1200337

PATIENT
  Age: 35 Year
  Sex: Female
  Weight: 80.36 kg

DRUGS (6)
  1. TRASTUZUMAB [Suspect]
     Indication: BREAST CANCER
     Route: 042
     Dates: start: 20130213, end: 20130213
  2. DOXORUBICIN [Suspect]
     Indication: BREAST CANCER
     Dosage: DATE OF LAST DOSE PRIOR TO SAE: 30/JAN/2013
     Route: 042
     Dates: start: 20121218
  3. TAXOL [Suspect]
     Indication: PRODUCT USED FOR UNKNOWN INDICATION
     Route: 065
  4. PERCOCET [Concomitant]
     Dosage: 5/325 MG
     Route: 065
     Dates: start: 20121220
  5. COMPAZINE [Concomitant]
     Route: 065
     Dates: start: 20121218
  6. PLACEBO [Suspect]
     Indication: BREAST CANCER
     Route: 042
     Dates: start: 20130213, end: 20130213

REACTIONS (1)
  - Ventricular arrhythmia [Not Recovered/Not Resolved]
